FAERS Safety Report 6278489-5 (Version None)
Quarter: 2009Q3

REPORT INFORMATION
  Report Type: 
  Country: None (occurrence: None)
  Receive Date: 20090721
  Receipt Date: 20090716
  Transmission Date: 20100115
  Serious: Yes (Hospitalization)
  Sender: FDA-Public Use
  Company Number: 2009SP014980

PATIENT
  Age: 35 Year
  Sex: Female

DRUGS (5)
  1. CELESTAMINE TAB [Suspect]
     Indication: BRONCHITIS
     Dosage: PO
     Route: 048
     Dates: start: 20090529, end: 20090603
  2. TOPLEXIL (APLEXIL) [Suspect]
     Indication: BRONCHITIS
     Dosage: PO
     Route: 048
     Dates: start: 20090529, end: 20090623
  3. ATURGYL (OXYMETAZOLINE) [Concomitant]
  4. KESTIN LYOC [Concomitant]
  5. PYOSTACINE [Concomitant]

REACTIONS (3)
  - EOSINOPHILIA [None]
  - THROMBOCYTOPENIC PURPURA [None]
  - URTICARIA [None]
